FAERS Safety Report 5848817-0 (Version None)
Quarter: 2008Q3

REPORT INFORMATION
  Report Type: 
  Country: None (occurrence: None)
  Receive Date: 20080818
  Receipt Date: 20080806
  Transmission Date: 20090109
  Serious: Yes (Death, Hospitalization, Other)
  Sender: FDA-Public Use
  Company Number: US-PFIZER INC-2008065548

PATIENT
  Sex: Female

DRUGS (14)
  1. ZOLOFT [Suspect]
     Dosage: DAILY DOSE:300MG
  2. DURAGESIC-100 [Suspect]
     Indication: RHEUMATOID ARTHRITIS
     Route: 062
     Dates: start: 20031208
  3. DURAGESIC-100 [Suspect]
     Indication: PAIN
  4. MS CONTIN [Suspect]
     Indication: RHEUMATOID ARTHRITIS
  5. QUETIAPINE FUMARATE [Suspect]
     Indication: DEPRESSION
  6. PERCOCET [Suspect]
  7. BUSPAR [Concomitant]
     Indication: DEPRESSION
  8. DEPAKOTE [Concomitant]
     Indication: DEPRESSION
     Dosage: DAILY DOSE:500MG
  9. REMERON [Concomitant]
     Indication: DEPRESSION
     Dates: start: 20031209
  10. REMERON [Concomitant]
     Indication: SLEEP DISORDER
  11. PRILOSEC [Concomitant]
     Indication: ULCER
     Dates: start: 20031209
  12. SYNTHROID [Concomitant]
     Indication: HYPOTHYROIDISM
  13. KLONOPIN [Concomitant]
     Indication: PANIC ATTACK
  14. ALL OTHER THERAPEUTIC PRODUCTS [Concomitant]

REACTIONS (9)
  - ASPIRATION [None]
  - DEPRESSION [None]
  - GAIT DISTURBANCE [None]
  - HALLUCINATION, AUDITORY [None]
  - OEDEMA [None]
  - PAIN IN EXTREMITY [None]
  - RESPIRATORY DEPRESSION [None]
  - SUICIDAL IDEATION [None]
  - UNRESPONSIVE TO STIMULI [None]
